FAERS Safety Report 8366871-1 (Version None)
Quarter: 2012Q2

REPORT INFORMATION
  Report Type: 
  Country: None (occurrence: None)
  Receive Date: 20120517
  Receipt Date: 20120508
  Transmission Date: 20120825
  Serious: Yes (Other)
  Sender: FDA-Public Use
  Company Number: IT-ROCHE-1063205

PATIENT
  Sex: Female
  Weight: 60 kg

DRUGS (2)
  1. CLONAZEPAM [Concomitant]
     Indication: DEPRESSION
     Dates: start: 20110826
  2. ACTEMRA [Suspect]
     Indication: RHEUMATOID ARTHRITIS

REACTIONS (1)
  - DYSAESTHESIA [None]
